FAERS Safety Report 12509649 (Version 1)
Quarter: 2016Q2

REPORT INFORMATION
  Report Type: Spontaneous
  Country: IT (occurrence: IT)
  Receive Date: 20160629
  Receipt Date: 20160629
  Transmission Date: 20160815
  Serious: Yes (Other)
  Sender: FDA-Public Use
  Company Number: IT-FRESENIUS KABI-FK201503364

PATIENT
  Age: 72 Year
  Sex: Male
  Weight: 69 kg

DRUGS (7)
  1. 5-FLUOROURACIL [Suspect]
     Active Substance: FLUOROURACIL
     Route: 041
     Dates: start: 20150102, end: 20160412
  2. LEVO FOLINIC ACID [Concomitant]
     Indication: RECTAL ADENOCARCINOMA
     Route: 042
     Dates: start: 20150102, end: 20150421
  3. LEDERFOLIN [Concomitant]
     Active Substance: LEUCOVORIN CALCIUM
     Indication: RECTAL ADENOCARCINOMA
     Route: 042
     Dates: start: 20150102, end: 20160412
  4. INSULIN [Concomitant]
     Active Substance: INSULIN NOS
  5. IRINOTECAN (MANUFACTURER UNKNOWN) [Suspect]
     Active Substance: IRINOTECAN
     Indication: RECTAL CANCER RECURRENT
     Route: 042
     Dates: start: 20150102, end: 20160412
  6. 5-FLUOROURACIL [Suspect]
     Active Substance: FLUOROURACIL
     Indication: RECTAL CANCER RECURRENT
     Route: 040
     Dates: start: 20150102, end: 20160412
  7. BEVACIZUMAB [Suspect]
     Active Substance: BEVACIZUMAB
     Indication: RECTAL CANCER RECURRENT
     Route: 042
     Dates: start: 20150102, end: 20160412

REACTIONS (13)
  - Dysuria [Recovering/Resolving]
  - Dry mouth [Not Recovered/Not Resolved]
  - Onychoclasis [Not Recovered/Not Resolved]
  - Neutropenia [Recovered/Resolved]
  - Thrombocytopenia [Recovered/Resolved]
  - Pharyngitis [Not Recovered/Not Resolved]
  - Stomatitis [Recovered/Resolved]
  - Dysphonia [Not Recovered/Not Resolved]
  - Hypertension [Recovered/Resolved]
  - Hyperkeratosis [Not Recovered/Not Resolved]
  - Back pain [Unknown]
  - Palmar erythema [Not Recovered/Not Resolved]
  - Paraesthesia [Not Recovered/Not Resolved]

NARRATIVE: CASE EVENT DATE: 20150428
